FAERS Safety Report 5144760-3 (Version None)
Quarter: 2006Q4

REPORT INFORMATION
  Report Type: 
  Country: None (occurrence: None)
  Receive Date: 20060905
  Receipt Date: 20060508
  Transmission Date: 20070319
  Serious: No
  Sender: FDA-Public Use
  Company Number: 34720

PATIENT
  Sex: Female

DRUGS (1)
  1. NEVANAC [Suspect]

REACTIONS (4)
  - BLOOD PRESSURE INCREASED [None]
  - CONSTIPATION [None]
  - DYSPEPSIA [None]
  - NAUSEA [None]
